FAERS Safety Report 9247300 (Version 2)
Quarter: 2013Q2

REPORT INFORMATION
  Report Type: Spontaneous
  Country: JP (occurrence: JP)
  Receive Date: 20130423
  Receipt Date: 20130624
  Transmission Date: 20140414
  Serious: Yes (Death, Hospitalization)
  Sender: FDA-Public Use
  Company Number: JP-AMGEN-JPNSP2013027924

PATIENT
  Sex: 0

DRUGS (3)
  1. VECTIBIX [Suspect]
     Indication: COLON CANCER
     Dosage: UNK UNK, QMO
     Route: 041
     Dates: start: 201302, end: 201303
  2. IRINOTECAN HYDROCHLORIDE [Suspect]
     Indication: COLON CANCER
     Dosage: UNK UNK, QMO
     Route: 041
     Dates: start: 201302, end: 201303
  3. TS-1 [Concomitant]
     Indication: COLON CANCER
     Dosage: UNK UNK, QMO
     Route: 048
     Dates: start: 201302, end: 201303

REACTIONS (4)
  - Infection [Recovered/Resolved]
  - Diarrhoea [Recovered/Resolved]
  - Shock [Fatal]
  - Blood albumin decreased [Fatal]
